FAERS Safety Report 4715811-2 (Version None)
Quarter: 2005Q3

REPORT INFORMATION
  Report Type: 
  Country: None (occurrence: None)
  Receive Date: 20050715
  Receipt Date: 20050715
  Transmission Date: 20060218
  Serious: Yes (Hospitalization)
  Sender: FDA-Public Use
  Company Number: None

PATIENT
  Sex: Male

DRUGS (9)
  1. HEPARIN [Suspect]
     Indication: MITRAL VALVE REPLACEMENT
  2. APAP TAB [Concomitant]
  3. FERROUS SULFATE TAB [Concomitant]
  4. FUROSEMIDE [Concomitant]
  5. INSULIN [Concomitant]
  6. METRONIDAZOLE [Concomitant]
  7. NEPHPLEX [Concomitant]
  8. PANTOPRAZOLE [Concomitant]
  9. SERTRALINE HCL [Concomitant]

REACTIONS (1)
  - GASTROINTESTINAL HAEMORRHAGE [None]
